FAERS Safety Report 21153069 (Version 1)
Quarter: 2022Q3

REPORT INFORMATION
  Report Type: Spontaneous
  Country: US (occurrence: US)
  Receive Date: 20220730
  Receipt Date: 20220730
  Transmission Date: 20221027
  Serious: No
  Sender: FDA-Public Use
  Company Number: US-SA-SAC20220727002031

PATIENT
  Sex: Male

DRUGS (7)
  1. AUBAGIO [Suspect]
     Active Substance: TERIFLUNOMIDE
     Indication: Multiple sclerosis
     Dosage: 14MG,QD
     Route: 048
     Dates: start: 201612
  2. HERBALS\TURMERIC [Concomitant]
     Active Substance: HERBALS\TURMERIC
  3. LEVOXYL [Concomitant]
     Active Substance: LEVOTHYROXINE SODIUM
  4. VITAMINS [Concomitant]
     Active Substance: VITAMINS
  5. DIETARY SUPPLEMENT [Concomitant]
     Active Substance: DIETARY SUPPLEMENT
  6. FISH OIL [Concomitant]
     Active Substance: FISH OIL
  7. VITAMIN D2 [Concomitant]
     Active Substance: ERGOCALCIFEROL

REACTIONS (2)
  - Skin disorder [Unknown]
  - Neurodermatitis [Unknown]
